FAERS Safety Report 5789427-3 (Version None)
Quarter: 2008Q2

REPORT INFORMATION
  Report Type: 
  Country: None (occurrence: None)
  Receive Date: 20080618
  Receipt Date: 20080301
  Transmission Date: 20081010
  Serious: Yes (Other)
  Sender: FDA-Public Use
  Company Number: 200811356US

PATIENT
  Age: 61 Year
  Sex: Male

DRUGS (9)
  1. LANTUS [Suspect]
     Indication: TYPE 1 DIABETES MELLITUS
     Dosage: 28 U HS SC
     Route: 058
  2. NOVOLOG [Concomitant]
  3. BENAZEPRIL HYDROCHLORIDE [Concomitant]
  4. HYDROCHLOROTHIAZIDE [Concomitant]
  5. SPIRIVA [Concomitant]
  6. FLUTICASONE PROPIONATE, SALMETEROL XINAFOATE (ADVAIR) [Concomitant]
  7. ASPIRIN [Concomitant]
  8. SIMVASTATIN [Concomitant]
  9. NIACIN [Concomitant]

REACTIONS (1)
  - HYPOGLYCAEMIC UNCONSCIOUSNESS [None]
